FAERS Safety Report 14179583 (Version 2)
Quarter: 2017Q4

REPORT INFORMATION
  Report Type: Report from Study
  Country: US (occurrence: US)
  Receive Date: 20171110
  Receipt Date: 20171114
  Transmission Date: 20180321
  Serious: No
  Sender: FDA-Public Use
  Company Number: US-GILEAD-2017-0304152

PATIENT
  Age: 88 Year
  Sex: Female

DRUGS (5)
  1. RANOLAZINE. [Suspect]
     Active Substance: RANOLAZINE
     Indication: ANGINA PECTORIS
     Dosage: 500 MG, UNK
     Route: 048
     Dates: start: 201710, end: 20171108
  2. PRAVASTATIN. [Concomitant]
     Active Substance: PRAVASTATIN
  3. ISOSORBIDE. [Concomitant]
     Active Substance: ISOSORBIDE
  4. LISINOPRIL. [Concomitant]
     Active Substance: LISINOPRIL
  5. ASPIRIN                            /00002701/ [Concomitant]
     Active Substance: ASPIRIN

REACTIONS (1)
  - Tremor [Unknown]
